FAERS Safety Report 8917336 (Version 3)
Quarter: 2013Q3

REPORT INFORMATION
  Report Type: Report from Study
  Country: US (occurrence: US)
  Receive Date: 20121119
  Receipt Date: 20130802
  Transmission Date: 20140515
  Serious: Yes (Hospitalization, Other)
  Sender: FDA-Public Use
  Company Number: US-ABBOTT-12P-163-1007850-00

PATIENT
  Age: 58 Year
  Sex: Female
  Weight: 71.28 kg

DRUGS (20)
  1. HUMIRA [Suspect]
     Indication: CROHN^S DISEASE
     Dates: start: 2010, end: 201102
  2. HUMIRA [Suspect]
     Dates: start: 201211, end: 201302
  3. HUMIRA [Suspect]
     Dates: start: 201302, end: 20130602
  4. HUMIRA [Suspect]
     Dates: start: 20130603, end: 20130701
  5. NEXIUM [Concomitant]
     Indication: GASTROOESOPHAGEAL REFLUX DISEASE
  6. COLESTIPOL HYDROCHLORIDE [Concomitant]
     Indication: DIARRHOEA
     Dosage: 2-4 TABLETS DAILY
  7. IMODIUM [Concomitant]
     Indication: DIARRHOEA
  8. PREMARIN [Concomitant]
     Indication: HYSTERECTOMY
  9. PREMARIN [Concomitant]
     Indication: OOPHORECTOMY
  10. SINGULAIR [Concomitant]
     Indication: ASTHMA
     Dosage: 10 MG DAILY
  11. SINGULAIR [Concomitant]
     Indication: HYPERSENSITIVITY
  12. TRETINOIN [Concomitant]
     Indication: MILIA
  13. PROAIR [Concomitant]
     Indication: ASTHMA
     Dosage: HFA
     Route: 055
  14. EPIPEN [Concomitant]
     Indication: ARTHROPOD STING
  15. FLUTICASONE [Concomitant]
     Indication: HYPERSENSITIVITY
  16. BENZONATATE [Concomitant]
     Indication: COUGH
  17. PHENERGAN [Concomitant]
     Indication: CROHN^S DISEASE
  18. ZOFRAN [Concomitant]
     Indication: CROHN^S DISEASE
  19. VITAMIN B 12 [Concomitant]
     Indication: ANAEMIA
  20. MULTIVITAMIN [Concomitant]
     Indication: PRODUCT USED FOR UNKNOWN INDICATION

REACTIONS (21)
  - Intestinal obstruction [Recovered/Resolved]
  - Loss of consciousness [Recovered/Resolved]
  - Campylobacter infection [Recovered/Resolved]
  - Abdominal adhesions [Recovered/Resolved]
  - Intestinal obstruction [Recovered/Resolved]
  - Crohn^s disease [Not Recovered/Not Resolved]
  - Demyelination [Unknown]
  - Vomiting [Recovered/Resolved]
  - Diarrhoea [Recovered/Resolved]
  - Abdominal pain [Recovered/Resolved]
  - Abdominal adhesions [Unknown]
  - Atypical pneumonia [Recovered/Resolved]
  - Staphylococcal infection [Recovered/Resolved]
  - Staphylococcal infection [Recovered/Resolved]
  - Pharyngitis streptococcal [Recovered/Resolved]
  - Drug ineffective [Not Recovered/Not Resolved]
  - Crohn^s disease [Not Recovered/Not Resolved]
  - Unevaluable event [Unknown]
  - Syncope [Unknown]
  - Eyelid ptosis [Recovered/Resolved]
  - Diplopia [Unknown]
